FAERS Safety Report 9434352 (Version 2)
Quarter: 2013Q3

REPORT INFORMATION
  Report Type: Spontaneous
  Country: US (occurrence: US)
  Receive Date: 20130801
  Receipt Date: 20130913
  Transmission Date: 20140515
  Serious: No
  Sender: FDA-Public Use
  Company Number: US-JNJFOC-20130713224

PATIENT
  Age: 42 Year
  Sex: Female
  Weight: 67.59 kg

DRUGS (12)
  1. DURAGESIC [Suspect]
     Indication: JUVENILE IDIOPATHIC ARTHRITIS
     Route: 062
     Dates: start: 2011
  2. DURAGESIC [Suspect]
     Indication: JUVENILE IDIOPATHIC ARTHRITIS
     Route: 062
     Dates: start: 2011
  3. DURAGESIC [Suspect]
     Indication: JUVENILE IDIOPATHIC ARTHRITIS
     Route: 062
     Dates: start: 20090901
  4. DURAGESIC [Suspect]
     Indication: JUVENILE IDIOPATHIC ARTHRITIS
     Route: 062
     Dates: start: 201307
  5. DURAGESIC [Suspect]
     Indication: RHEUMATOID ARTHRITIS
     Route: 062
     Dates: start: 201307
  6. DURAGESIC [Suspect]
     Indication: RHEUMATOID ARTHRITIS
     Route: 062
     Dates: start: 2011
  7. DURAGESIC [Suspect]
     Indication: RHEUMATOID ARTHRITIS
     Route: 062
     Dates: start: 2011
  8. DURAGESIC [Suspect]
     Indication: RHEUMATOID ARTHRITIS
     Route: 062
     Dates: start: 20090901
  9. DURAGESIC [Suspect]
     Indication: FIBROMYALGIA
     Route: 062
     Dates: start: 201307
  10. DURAGESIC [Suspect]
     Indication: FIBROMYALGIA
     Route: 062
     Dates: start: 2011
  11. DURAGESIC [Suspect]
     Indication: FIBROMYALGIA
     Route: 062
     Dates: start: 2011
  12. DURAGESIC [Suspect]
     Indication: FIBROMYALGIA
     Route: 062
     Dates: start: 20090901

REACTIONS (9)
  - Adverse event [Unknown]
  - Wrong technique in drug usage process [Not Recovered/Not Resolved]
  - Application site vesicles [Not Recovered/Not Resolved]
  - Product quality issue [Unknown]
  - Wrong technique in drug usage process [Not Recovered/Not Resolved]
  - Product quality issue [Not Recovered/Not Resolved]
  - Drug ineffective [Not Recovered/Not Resolved]
  - Dermatitis bullous [Not Recovered/Not Resolved]
  - Wrong technique in drug usage process [Unknown]
